FAERS Safety Report 4591494-X (Version None)
Quarter: 2005Q1

REPORT INFORMATION
  Report Type: 
  Country: None (occurrence: None)
  Receive Date: 20050222
  Receipt Date: 20050208
  Transmission Date: 20050727
  Serious: Yes (Hospitalization)
  Sender: FDA-Public Use
  Company Number: 2005022794

PATIENT
  Age: 3 Year
  Sex: Female

DRUGS (6)
  1. AZITHROMYCIN [Suspect]
     Indication: TONSILLITIS
     Dosage: 120 MG (1 IN 1 D), ORAL
     Route: 048
     Dates: start: 20050126, end: 20050127
  2. CEFDITOREN PIVOXIL (CEFDITOREN PIVOXIL) [Suspect]
     Indication: TONSILLITIS
     Dosage: ORAL
     Route: 048
     Dates: start: 20050125, end: 20050127
  3. ALIMEMAZINE (ALIMEMZAINE) [Suspect]
     Indication: TONSILLITIS
     Dosage: ORAL
     Route: 048
     Dates: start: 20050125, end: 20050127
  4. DEXCHLORPHENIRAMINE MALEATE [Suspect]
     Indication: TONSILLITIS
     Dates: start: 20050125, end: 20050128
  5. TIPEPIDINE HIBENZATE (TIPEPIDINEHIBENZATE) [Suspect]
     Indication: TONSILLITIS
     Dosage: ORAL
     Route: 048
     Dates: start: 20050125, end: 20050127
  6. CEFDINIR (CEFDINIR) [Suspect]
     Indication: TONSILLITIS
     Dosage: ORAL
     Route: 048
     Dates: start: 20050127, end: 20050128

REACTIONS (8)
  - DRUG INEFFECTIVE [None]
  - KAWASAKI'S DISEASE [None]
  - OEDEMA PERIPHERAL [None]
  - PHARMACEUTICAL PRODUCT COMPLAINT [None]
  - PURULENCE [None]
  - TONSILLAR HYPERTROPHY [None]
  - VOMITING [None]
  - WHITE BLOOD CELL COUNT DECREASED [None]
